FAERS Safety Report 13195323 (Version 1)
Quarter: 2017Q1

REPORT INFORMATION
  Report Type: Report from Study
  Country: DE (occurrence: DE)
  Receive Date: 20170208
  Receipt Date: 20170208
  Transmission Date: 20170428
  Serious: Yes (Hospitalization, Other)
  Sender: FDA-Public Use
  Company Number: DE-UCBSA-2017004770

PATIENT
  Sex: Female

DRUGS (2)
  1. MABTHERA [Concomitant]
     Active Substance: RITUXIMAB
     Indication: PRODUCT USED FOR UNKNOWN INDICATION
     Dosage: 1000 MG, UNK
     Dates: start: 201604
  2. CERTOLIZUMAB PEGOL RA [Suspect]
     Active Substance: CERTOLIZUMAB PEGOL
     Indication: RHEUMATOID ARTHRITIS
     Dosage: 400 MG, UNK
     Dates: start: 201601, end: 201602

REACTIONS (6)
  - Pain [Unknown]
  - Polyneuropathy [Unknown]
  - Pyrexia [Unknown]
  - Abdominal pain [Unknown]
  - Urinary tract infection [Unknown]
  - Headache [Unknown]

NARRATIVE: CASE EVENT DATE: 20160215
